FAERS Safety Report 8852462 (Version 7)
Quarter: 2013Q2

REPORT INFORMATION
  Report Type: Spontaneous
  Country: US (occurrence: US)
  Receive Date: 20121022
  Receipt Date: 20130611
  Transmission Date: 20140414
  Serious: Yes (Hospitalization, Other)
  Sender: FDA-Public Use
  Company Number: US-009507513-1201USA00889

PATIENT
  Sex: Female
  Weight: 78.5 kg

DRUGS (7)
  1. FOSAMAX [Suspect]
     Indication: OSTEOPENIA
     Dosage: 10 MG, QD
     Route: 048
     Dates: start: 199509
  2. FOSAMAX [Suspect]
     Indication: OSTEOPOROSIS
     Dosage: 70 MG, QW
     Route: 048
     Dates: start: 200107, end: 200912
  3. FOSAMAX [Suspect]
     Dosage: UNK
     Route: 048
     Dates: end: 19980609
  4. FOSAMAX [Suspect]
     Indication: PRODUCT USED FOR UNKNOWN INDICATION
     Route: 048
  5. CALCIUM (UNSPECIFIED) [Concomitant]
     Dosage: 600 MG BID
     Dates: start: 1990
  6. VITAMIN D (UNSPECIFIED) [Concomitant]
     Dosage: 400 BID
     Dates: start: 1990
  7. CYANOCOBALAMIN [Concomitant]
     Dosage: UNK, QD
     Dates: start: 1990

REACTIONS (54)
  - Femur fracture [Unknown]
  - Intramedullary rod insertion [Unknown]
  - Skin graft [Unknown]
  - Extramammary Paget^s disease [Unknown]
  - Knee arthroplasty [Unknown]
  - Atrial fibrillation [Unknown]
  - Culture urine positive [Unknown]
  - Dental prosthesis placement [Unknown]
  - Hypertension [Unknown]
  - Heart rate irregular [Unknown]
  - Adverse event [Unknown]
  - Vascular injury [Unknown]
  - Mediastinal disorder [Unknown]
  - Fall [Unknown]
  - Arthritis [Unknown]
  - Arthropathy [Unknown]
  - Rotator cuff syndrome [Unknown]
  - Mitral valve incompetence [Unknown]
  - Intervertebral disc protrusion [Unknown]
  - Tricuspid valve incompetence [Unknown]
  - Sleep apnoea syndrome [Unknown]
  - Dyslipidaemia [Unknown]
  - Epistaxis [Unknown]
  - Cholelithiasis [Unknown]
  - Colon polypectomy [Unknown]
  - Colon polypectomy [Unknown]
  - Haematuria [Unknown]
  - Tendonitis [Recovered/Resolved]
  - Adverse drug reaction [Recovering/Resolving]
  - Laboratory test abnormal [Unknown]
  - Osteitis deformans [Unknown]
  - Large intestine benign neoplasm [Unknown]
  - Seborrhoeic keratosis [Unknown]
  - Actinic keratosis [Unknown]
  - Tinnitus [Unknown]
  - Osteoarthritis [Unknown]
  - Spinal osteoarthritis [Unknown]
  - Spinal osteoarthritis [Unknown]
  - Radiculitis brachial [Unknown]
  - Radiculitis brachial [Unknown]
  - Radiculitis lumbosacral [Unknown]
  - Spinal osteoarthritis [Unknown]
  - Groin pain [Unknown]
  - Body height decreased [Unknown]
  - Intervertebral disc degeneration [Not Recovered/Not Resolved]
  - Oedema [Unknown]
  - Papilloma viral infection [Unknown]
  - Osteoarthritis [Unknown]
  - Kyphosis [Unknown]
  - Urinary tract infection [Unknown]
  - Sleep disorder [Unknown]
  - Ligament sprain [Unknown]
  - Pain in extremity [Recovering/Resolving]
  - Gastrooesophageal reflux disease [Not Recovered/Not Resolved]
